FAERS Safety Report 12437143 (Version 1)
Quarter: 2016Q2

REPORT INFORMATION
  Report Type: Spontaneous
  Country: IT (occurrence: IT)
  Receive Date: 20160606
  Receipt Date: 20160606
  Transmission Date: 20160815
  Serious: Yes (Other)
  Sender: FDA-Public Use
  Company Number: IT-ROCHE-1769710

PATIENT
  Age: 54 Year
  Sex: Male

DRUGS (9)
  1. COPEGUS [Suspect]
     Active Substance: RIBAVIRIN
     Indication: HEPATITIS C
     Route: 048
     Dates: start: 20150130, end: 20150714
  2. CERTICAN [Concomitant]
     Active Substance: EVEROLIMUS
     Route: 048
  3. EUTIROX [Concomitant]
     Active Substance: LEVOTHYROXINE SODIUM
     Dosage: ^75 MICROGRAM TABLETS^ 50 TABLETS
     Route: 048
  4. CLASTEON [Concomitant]
     Route: 048
  5. FOLINA (ITALY) [Concomitant]
     Route: 048
  6. LIMPIDEX [Concomitant]
     Active Substance: LANSOPRAZOLE
     Route: 048
  7. DEURSIL [Concomitant]
     Active Substance: URSODIOL
     Route: 048
  8. ADVAGRAF [Concomitant]
     Active Substance: TACROLIMUS
     Route: 048
  9. SOVALDI [Suspect]
     Active Substance: SOFOSBUVIR
     Indication: HEPATITIS C
     Route: 048
     Dates: start: 20150130, end: 20150714

REACTIONS (2)
  - Drug ineffective [Unknown]
  - Hepatitis C RNA [Recovered/Resolved]

NARRATIVE: CASE EVENT DATE: 20150812
